FAERS Safety Report 5526386-2 (Version None)
Quarter: 2007Q4

REPORT INFORMATION
  Report Type: 
  Country: None (occurrence: None)
  Receive Date: 20071127
  Receipt Date: 20071121
  Transmission Date: 20080405
  Serious: Yes (Death, Other)
  Sender: FDA-Public Use
  Company Number: PL-BRISTOL-MYERS SQUIBB COMPANY-13991161

PATIENT
  Age: 58 Year
  Sex: Male

DRUGS (7)
  1. ETOPOSIDE [Suspect]
     Indication: LYMPHOMA
  2. IFOSFAMIDE [Suspect]
     Indication: LYMPHOMA
  3. CYCLOPHOSPHAMIDE [Suspect]
     Indication: LYMPHOMA
  4. VINCRISTINE SULFATE [Suspect]
     Indication: LYMPHOMA
  5. CYTARABINE [Suspect]
     Indication: LYMPHOMA
  6. MITOXANTRONE [Suspect]
     Indication: LYMPHOMA
  7. ENCORTON [Suspect]
     Indication: LYMPHOMA

REACTIONS (3)
  - NEOPLASM RECURRENCE [None]
  - RESPIRATORY FAILURE [None]
  - SHOCK [None]
